FAERS Safety Report 8615469-6 (Version None)
Quarter: 2012Q3

REPORT INFORMATION
  Report Type: 
  Country: None (occurrence: None)
  Receive Date: 20120823
  Receipt Date: 20120821
  Transmission Date: 20120928
  Serious: Yes (Hospitalization)
  Sender: FDA-Public Use
  Company Number: US-ELI_LILLY_AND_COMPANY-US201205003581

PATIENT
  Sex: Male
  Weight: 72.109 kg

DRUGS (1)
  1. PRASUGREL HYDROCHLORIDE [Suspect]
     Dosage: UNK
     Dates: start: 20120310

REACTIONS (1)
  - ACUTE CORONARY SYNDROME [None]
